FAERS Safety Report 7625312-X (Version None)
Quarter: 2011Q3

REPORT INFORMATION
  Report Type: 
  Country: None (occurrence: None)
  Receive Date: 20110721
  Receipt Date: 20110719
  Transmission Date: 20111222
  Serious: No
  Sender: FDA-Public Use
  Company Number: US-PFIZER INC-2011164543

PATIENT
  Sex: Female
  Weight: 79 kg

DRUGS (1)
  1. LIPITOR [Suspect]
     Indication: BLOOD CHOLESTEROL INCREASED
     Dosage: UNK, DAILY BEFORE BED
     Route: 048
     Dates: start: 20110711, end: 20110715

REACTIONS (4)
  - DIARRHOEA [None]
  - MUSCULAR WEAKNESS [None]
  - NAUSEA [None]
  - ABDOMINAL DISCOMFORT [None]
